FAERS Safety Report 6596754-9 (Version None)
Quarter: 2010Q1

REPORT INFORMATION
  Report Type: 
  Country: None (occurrence: None)
  Receive Date: 20100223
  Receipt Date: 20100215
  Transmission Date: 20100710
  Serious: Yes (Hospitalization)
  Sender: FDA-Public Use
  Company Number: CA-MERCK-1002USA02078

PATIENT
  Age: 63 Year
  Sex: Female

DRUGS (14)
  1. DECADRON [Suspect]
     Route: 048
  2. REVLIMID [Suspect]
     Indication: MULTIPLE MYELOMA
     Route: 048
     Dates: start: 20090116
  3. REVLIMID [Suspect]
     Route: 048
     Dates: start: 20090401
  4. REVLIMID [Suspect]
     Route: 048
     Dates: start: 20090501
  5. REVLIMID [Suspect]
     Route: 048
     Dates: start: 20090901
  6. CALCIUM (UNSPECIFIED) AND VITAMIN D (UNSPECIFIED) [Concomitant]
     Route: 065
  7. AREDIA [Concomitant]
     Route: 065
  8. COUMADIN [Concomitant]
     Indication: PULMONARY EMBOLISM
     Route: 065
  9. COUMADIN [Concomitant]
     Indication: DEEP VEIN THROMBOSIS
     Route: 065
  10. COLACE [Concomitant]
     Route: 065
  11. SERAX [Concomitant]
     Route: 065
  12. DILAUDID [Concomitant]
     Route: 065
  13. MULTIVITE [Concomitant]
     Route: 065
  14. FRAGMIN [Concomitant]
     Route: 065

REACTIONS (5)
  - DRY MOUTH [None]
  - MUSCLE SPASMS [None]
  - PALPITATIONS [None]
  - THROMBOPHLEBITIS [None]
  - TREMOR [None]
